FAERS Safety Report 8517714-4 (Version None)
Quarter: 2012Q3

REPORT INFORMATION
  Report Type: 
  Country: None (occurrence: None)
  Receive Date: 20120718
  Receipt Date: 20120711
  Transmission Date: 20120928
  Serious: Yes (Disabling)
  Sender: FDA-Public Use
  Company Number: US-CELGENEUS-163-20785-12060905

PATIENT
  Sex: Male

DRUGS (16)
  1. ACETAMINOPHEN [Concomitant]
     Dosage: 500 MILLIGRAM
     Route: 048
     Dates: start: 20120224
  2. FOLIC ACID [Concomitant]
     Dosage: 1 MILLIGRAM
     Route: 048
     Dates: start: 20111109, end: 20120424
  3. TEARS (LACRI-LUBE) [Concomitant]
     Dosage: 3.5 GRAM
     Route: 065
     Dates: start: 20111109, end: 20120424
  4. THALOMID [Suspect]
     Dosage: 50 MILLIGRAM
     Route: 048
     Dates: start: 20111201, end: 20120308
  5. LACTULOSE [Concomitant]
     Dosage: 4 TABLESPOON
     Route: 048
     Dates: start: 20120224, end: 20120424
  6. TEARS (REFRESH) [Concomitant]
     Dosage: 30 MILLILITER
     Route: 065
     Dates: start: 20111109, end: 20120424
  7. FLUNISOLIDE [Concomitant]
     Dosage: 4
     Route: 045
     Dates: start: 20111109, end: 20120424
  8. THALOMID [Suspect]
     Dosage: 200 MILLIGRAM
     Route: 048
     Dates: start: 20100501
  9. THALOMID [Suspect]
     Dosage: 100-200MG
     Route: 048
     Dates: start: 20110401
  10. WARFARIN SODIUM [Concomitant]
     Dosage: 5 MILLIGRAM
     Route: 048
     Dates: start: 20111109, end: 20120308
  11. THALOMID [Suspect]
     Indication: MULTIPLE MYELOMA
     Dosage: 200 MILLIGRAM
     Route: 048
     Dates: start: 20081002
  12. DEXAMETHASONE [Concomitant]
     Dosage: 5.7143 MILLIGRAM
     Route: 048
     Dates: start: 20111109, end: 20120308
  13. NAPHAZOLINE/PHENIRAMINE [Concomitant]
     Dosage: 60 MILLILITER
     Route: 065
     Dates: start: 20111109, end: 20120424
  14. NITROGLYCERIN [Concomitant]
     Indication: CHEST PAIN
     Dosage: .4 MILLILITER
     Route: 060
     Dates: start: 20111109, end: 20120424
  15. SENNA-MINT WAF [Concomitant]
     Dosage: 17.2 MILLIGRAM
     Route: 048
     Dates: start: 20120224, end: 20120424
  16. THALOMID [Suspect]
     Dosage: 300-400MG
     Route: 048
     Dates: start: 20081101

REACTIONS (2)
  - MOVEMENT DISORDER [None]
  - NEUROPATHY PERIPHERAL [None]
